FAERS Safety Report 5758209-0 (Version None)
Quarter: 2008Q2

REPORT INFORMATION
  Report Type: 
  Country: None (occurrence: None)
  Receive Date: 20080604
  Receipt Date: 20080520
  Transmission Date: 20081010
  Serious: No
  Sender: FDA-Public Use
  Company Number: US-BAYER-200810441NA

PATIENT
  Age: 25 Year
  Sex: Female
  Weight: 85 kg

DRUGS (1)
  1. MIRENA [Suspect]
     Indication: CONTRACEPTION
     Route: 015
     Dates: start: 20060301

REACTIONS (2)
  - BREAST TENDERNESS [None]
  - FEELING ABNORMAL [None]
